FAERS Safety Report 7983826-7 (Version None)
Quarter: 2011Q4

REPORT INFORMATION
  Report Type: 
  Country: None (occurrence: None)
  Receive Date: 20111216
  Receipt Date: 20111209
  Transmission Date: 20120403
  Serious: Yes (Hospitalization)
  Sender: FDA-Public Use
  Company Number: US-BIOGENIDEC-2011BI046847

PATIENT
  Age: 38 Year
  Sex: Female

DRUGS (4)
  1. CYMBALTA [Concomitant]
     Indication: SYSTEMIC LUPUS ERYTHEMATOSUS
     Dates: start: 20060101, end: 20110101
  2. TYSABRI [Suspect]
     Indication: CROHN'S DISEASE
     Route: 042
     Dates: start: 20110315, end: 20110601
  3. PREDNISONE [Concomitant]
     Indication: SYSTEMIC LUPUS ERYTHEMATOSUS
     Dates: start: 20060101, end: 20110101
  4. PLAQUENIL [Concomitant]
     Indication: SYSTEMIC LUPUS ERYTHEMATOSUS
     Dates: start: 20060101, end: 20110101

REACTIONS (15)
  - DYSPNOEA [None]
  - BLOOD POTASSIUM DECREASED [None]
  - SWELLING [None]
  - ANAEMIA [None]
  - STAPHYLOCOCCAL SEPSIS [None]
  - PNEUMONIA [None]
  - CROHN'S DISEASE [None]
  - HEPATIC STEATOSIS [None]
  - PYREXIA [None]
  - PAIN [None]
  - CHILLS [None]
  - GASTROINTESTINAL DISORDER [None]
  - GASTRIC DILATATION [None]
  - RENAL FAILURE [None]
  - HEPATOMEGALY [None]
